FAERS Safety Report 11344071 (Version 2)
Quarter: 2015Q3

REPORT INFORMATION
  Report Type: Spontaneous
  Country: US (occurrence: US)
  Receive Date: 20150806
  Receipt Date: 20150826
  Transmission Date: 20151125
  Serious: Yes (Other)
  Sender: FDA-Public Use
  Company Number: US-JNJFOC-20150720215

PATIENT
  Age: 97 Year
  Sex: Female
  Weight: 43.09 kg

DRUGS (2)
  1. IMODIUM MULTI-SYMPTOM RELIEF [Suspect]
     Active Substance: DIMETHICONE\LOPERAMIDE HYDROCHLORIDE
     Indication: DIARRHOEA
     Dosage: HALF CAPLET TWICE
     Route: 048
     Dates: start: 20150726, end: 20150726
  2. IMODIUM MULTI-SYMPTOM RELIEF [Suspect]
     Active Substance: DIMETHICONE\LOPERAMIDE HYDROCHLORIDE
     Route: 048

REACTIONS (9)
  - Wrong technique in product usage process [Unknown]
  - Product size issue [Unknown]
  - Product packaging issue [Unknown]
  - Product label issue [None]
  - Choking [Recovered/Resolved]
  - Dysphagia [Unknown]
  - Product friable [Unknown]
  - Product coating issue [Unknown]
  - Product quality issue [None]

NARRATIVE: CASE EVENT DATE: 20150726
